FAERS Safety Report 5505330-8 (Version None)
Quarter: 2007Q4

REPORT INFORMATION
  Report Type: 
  Country: None (occurrence: None)
  Receive Date: 20071102
  Receipt Date: 20071025
  Transmission Date: 20080405
  Serious: Yes (Hospitalization)
  Sender: FDA-Public Use
  Company Number: B0493656A

PATIENT
  Age: 60 Year
  Sex: Male
  Weight: 81 kg

DRUGS (7)
  1. ZOFRAN [Suspect]
     Indication: PROPHYLAXIS OF NAUSEA AND VOMITING
     Dosage: 8MG SEE DOSAGE TEXT
     Route: 042
     Dates: start: 20070820
  2. MONOCLONAL ANTIBODY [Suspect]
     Indication: COLORECTAL CANCER
     Dosage: 6MGK PER DAY
     Route: 042
     Dates: start: 20070820, end: 20070820
  3. METHYLPREDNISOLONE SODIUM SUCCINATE [Suspect]
     Indication: DRUG USE FOR UNKNOWN INDICATION
     Route: 042
  4. DURAGESIC-100 [Concomitant]
     Indication: DRUG USE FOR UNKNOWN INDICATION
     Dosage: 20MCG PER DAY
     Route: 065
  5. CAFFEINE [Concomitant]
     Indication: DRUG USE FOR UNKNOWN INDICATION
     Route: 065
  6. ZOPICLONE [Concomitant]
     Indication: DRUG USE FOR UNKNOWN INDICATION
     Route: 065
  7. PARAFFINE LIQUIDE [Concomitant]
     Indication: DRUG USE FOR UNKNOWN INDICATION
     Route: 065

REACTIONS (12)
  - ASTHENIA [None]
  - BLOOD PRESSURE DECREASED [None]
  - DIARRHOEA [None]
  - FEELING HOT [None]
  - HYPERHIDROSIS [None]
  - HYPERTHERMIA [None]
  - LOSS OF CONSCIOUSNESS [None]
  - MALAISE [None]
  - OXYGEN SATURATION DECREASED [None]
  - PARAESTHESIA [None]
  - PRURITUS [None]
  - RESPIRATORY DISORDER [None]
